FAERS Safety Report 24261064 (Version 1)
Quarter: 2024Q3

REPORT INFORMATION
  Report Type: Spontaneous
  Country: GB (occurrence: GB)
  Receive Date: 20240829
  Receipt Date: 20240829
  Transmission Date: 20241017
  Serious: Yes (Life-Threatening, Hospitalization, Other)
  Sender: NOVO NORDISK
  Company Number: GB-MHRA-WEBRADR-202408201626254350-WKCHV

PATIENT
  Age: 44 Year
  Sex: Female
  Weight: 90 kg

DRUGS (1)
  1. OZEMPIC [Suspect]
     Active Substance: SEMAGLUTIDE
     Indication: Weight control
     Dosage: UNK
     Route: 058
     Dates: start: 20240728, end: 20240804

REACTIONS (3)
  - Pancreatitis [Not Recovered/Not Resolved]
  - Cardiac arrest [Unknown]
  - Product use in unapproved indication [Recovered/Resolved]

NARRATIVE: CASE EVENT DATE: 20240728
